FAERS Safety Report 7939979-X (Version None)
Quarter: 2011Q4

REPORT INFORMATION
  Report Type: 
  Country: None (occurrence: None)
  Receive Date: 20111125
  Receipt Date: 20111018
  Transmission Date: 20120403
  Serious: Yes (Hospitalization)
  Sender: FDA-Public Use
  Company Number: FR-ROCHE-751050

PATIENT
  Sex: Female
  Weight: 68 kg

DRUGS (7)
  1. LEFLUNOMIDE [Suspect]
     Indication: RHEUMATOID ARTHRITIS
     Dosage: LAST DOSE PRIOR TO SAE:GASTROENTERITIS  17 AUG 2010 LAST DOSE PRIOR TO SAE:OSTEONECROSIS 10 SEP 2010
     Route: 048
  2. RISEDRONATE SODIUM [Suspect]
     Indication: PRODUCT USED FOR UNKNOWN INDICATION
     Route: 065
     Dates: start: 20030101, end: 20090601
  3. ACETAMINOPHEN [Concomitant]
     Route: 048
     Dates: start: 20100708
  4. PREDNISONE TAB [Suspect]
     Indication: RHEUMATOID ARTHRITIS
     Dosage: LAST DOSE PRIOR TO SAE:GASTROENTERITIS  17 AUG 2010 LAST DOSE PRIOR TO SAE:OSTEONECROSIS 10 SEP 2010
     Route: 048
  5. AMLODIPINE BESYLATE [Concomitant]
     Route: 048
     Dates: start: 20090101
  6. MABTHERA [Suspect]
     Indication: RHEUMATOID ARTHRITIS
     Dosage: ROUTE: INFUSED DATE OF LAST DOSE PRIOR TO SAE: 22 JULY 2010
     Route: 050
     Dates: start: 20090929, end: 20100722
  7. OMEPRAZOLE [Concomitant]
     Route: 048
     Dates: start: 20080101

REACTIONS (3)
  - PERIODONTAL DISEASE [None]
  - OSTEONECROSIS OF JAW [None]
  - GASTROENTERITIS [None]
